FAERS Safety Report 12648546 (Version 1)
Quarter: 2016Q3

REPORT INFORMATION
  Report Type: Spontaneous
  Country: CN (occurrence: CN)
  Receive Date: 20160812
  Receipt Date: 20160812
  Transmission Date: 20161109
  Serious: Yes (Hospitalization)
  Sender: FDA-Public Use
  Company Number: CN-ASTRAZENECA-2016SE86449

PATIENT
  Age: 1719 Day
  Sex: Female

DRUGS (3)
  1. FLUCONAZOLE AND SODIUM CHLORIDE [Suspect]
     Active Substance: FLUCONAZOLE
     Indication: FUNGAL INFECTION
     Dosage: DAILY
     Route: 042
     Dates: start: 20160303, end: 20160312
  2. MEROPENEM. [Suspect]
     Active Substance: MEROPENEM
     Indication: HELICOBACTER INFECTION
     Dosage: THREE TIMES DAILY
     Route: 042
     Dates: start: 20160301, end: 20160312
  3. VANCOCYN [Suspect]
     Active Substance: VANCOMYCIN HYDROCHLORIDE
     Indication: INFECTION
     Dosage: EVERY SIX HOURS
     Route: 042
     Dates: start: 20160303, end: 20160312

REACTIONS (3)
  - Hepatic function abnormal [Recovered/Resolved]
  - Alanine aminotransferase abnormal [Unknown]
  - Aspartate aminotransferase abnormal [Unknown]

NARRATIVE: CASE EVENT DATE: 20160312
